FAERS Safety Report 9676172 (Version 1)
Quarter: 2013Q4

REPORT INFORMATION
  Report Type: Spontaneous
  Country: US (occurrence: None)
  Receive Date: 20131105
  Receipt Date: 20131105
  Transmission Date: 20140711
  Serious: Yes (Other)
  Sender: FDA-Public Use
  Company Number: 001622243A

PATIENT
  Age: 13 Year
  Sex: Female

DRUGS (3)
  1. PROACTIV RENEWING CLEANSER [Suspect]
     Indication: ACNE
     Dosage: ONCE DAILY DERMAL
     Dates: start: 20130925
  2. PROACTIV REPAIRING TREATMENT [Suspect]
     Indication: ACNE
     Dosage: ONCE DAILY DERMAL
     Dates: start: 20130925
  3. MULTIVITAMINS [Concomitant]

REACTIONS (2)
  - Swelling face [None]
  - Eye swelling [None]
